FAERS Safety Report 8471446-X (Version None)
Quarter: 2012Q2

REPORT INFORMATION
  Report Type: 
  Country: None (occurrence: None)
  Receive Date: 20120627
  Receipt Date: 20120625
  Transmission Date: 20120825
  Serious: Yes (Death)
  Sender: FDA-Public Use
  Company Number: PHHY2012CA017732

PATIENT
  Sex: Female

DRUGS (7)
  1. LASIX [Concomitant]
  2. MS CONTIN [Concomitant]
  3. SPIRIVA [Concomitant]
  4. REMERON [Concomitant]
  5. ZYPREXA [Concomitant]
  6. ZOLEDRONOC ACID [Suspect]
     Indication: OSTEOPOROSIS
     Dosage: UNK UKN, YEARLY
     Route: 042
     Dates: start: 20111031
  7. DIAZEPAM [Concomitant]

REACTIONS (1)
  - PNEUMONIA [None]
